FAERS Safety Report 15603349 (Version 1)
Quarter: 2018Q4

REPORT INFORMATION
  Report Type: Spontaneous
  Country: JP (occurrence: JP)
  Receive Date: 20181109
  Receipt Date: 20181109
  Transmission Date: 20190205
  Serious: Yes (Other)
  Sender: FDA-Public Use
  Company Number: JP-ELI_LILLY_AND_COMPANY-JP201811003614

PATIENT
  Age: 73 Year
  Sex: Male

DRUGS (2)
  1. PACLITAXEL. [Suspect]
     Active Substance: PACLITAXEL
     Indication: PHARYNGEAL CANCER
     Dosage: UNK UNK, UNKNOWN
  2. ERBITUX [Suspect]
     Active Substance: CETUXIMAB
     Indication: PHARYNGEAL CANCER
     Dosage: UNK UNK, UNKNOWN
     Route: 041

REACTIONS (4)
  - Malignant neoplasm progression [Unknown]
  - Erythema [Unknown]
  - Off label use [Unknown]
  - Drug eruption [Unknown]
